FAERS Safety Report 25367141 (Version 1)
Quarter: 2025Q2

REPORT INFORMATION
  Report Type: Spontaneous
  Country: SA (occurrence: SA)
  Receive Date: 20250528
  Receipt Date: 20250528
  Transmission Date: 20250717
  Serious: Yes (Hospitalization)
  Sender: AMGEN
  Company Number: SA-AMGEN-SAUSP2025101134

PATIENT
  Age: 29 Year
  Sex: Female

DRUGS (11)
  1. FILGRASTIM [Suspect]
     Active Substance: FILGRASTIM
     Indication: Cytopenia
     Route: 065
  2. FILGRASTIM [Suspect]
     Active Substance: FILGRASTIM
     Indication: Off label use
  3. RITUXIMAB [Concomitant]
     Active Substance: RITUXIMAB
     Indication: Systemic lupus erythematosus
     Dosage: 1 GRAM, Q2WK
     Route: 040
  4. METHYLPREDNISOLONE [Concomitant]
     Active Substance: METHYLPREDNISOLONE
     Indication: Systemic lupus erythematosus
     Dosage: 1 GRAM, QD (FOR THREE DAYS)
     Route: 040
  5. PREDNISOLONE [Concomitant]
     Active Substance: PREDNISOLONE
     Indication: Systemic lupus erythematosus
     Dosage: 1 MILLIGRAM/KILOGRAM, 50 MG/DAY REDUCED BY 5 MG EVERY WEEK UNTIL 5 MG/DAY WAS MAINTAINED
     Route: 048
  6. HYDROXYCHLOROQUINE [Concomitant]
     Active Substance: HYDROXYCHLOROQUINE
     Indication: Systemic lupus erythematosus
     Dosage: 200 MILLIGRAM, QD
  7. LINEZOLID [Concomitant]
     Active Substance: LINEZOLID
     Indication: Systemic lupus erythematosus
  8. ACYCLOVIR [Concomitant]
     Active Substance: ACYCLOVIR
     Indication: Systemic lupus erythematosus
  9. ANIDULAFUNGIN [Concomitant]
     Active Substance: ANIDULAFUNGIN
     Indication: Systemic lupus erythematosus
  10. Immunoglobulin [Concomitant]
     Indication: Systemic lupus erythematosus
     Dosage: 400 MILLIGRAM/KILOGRAM, QD (FOR FIVE DAYS)
     Route: 040
  11. MEROPENEM [Concomitant]
     Active Substance: MEROPENEM
     Indication: Systemic lupus erythematosus

REACTIONS (2)
  - Neuropsychiatric lupus [Recovering/Resolving]
  - Off label use [Unknown]
